FAERS Safety Report 5453071-8 (Version None)
Quarter: 2007Q3

REPORT INFORMATION
  Report Type: 
  Country: None (occurrence: None)
  Receive Date: 20070914
  Receipt Date: 20070912
  Transmission Date: 20080115
  Serious: Yes (Hospitalization)
  Sender: FDA-Public Use
  Company Number: US-GENENTECH-247554

PATIENT
  Age: 50 Year
  Sex: Female
  Weight: 95.1 kg

DRUGS (3)
  1. ACTIVASE [Suspect]
     Indication: PULMONARY EMBOLISM
     Dosage: 25 MG, SINGLE
     Route: 042
     Dates: start: 20070911
  2. ACTIVASE [Suspect]
     Dosage: 75 MG, SINGLE
     Route: 042
     Dates: start: 20070912
  3. HEPARIN [Concomitant]
     Indication: DRUG USE FOR UNKNOWN INDICATION

REACTIONS (1)
  - ABDOMINAL PAIN [None]
